FAERS Safety Report 6765777-9 (Version None)
Quarter: 2010Q2

REPORT INFORMATION
  Report Type: 
  Country: None (occurrence: None)
  Receive Date: 20100610
  Receipt Date: 20100610
  Transmission Date: 20101027
  Serious: Yes (Other)
  Sender: FDA-Public Use
  Company Number: None

PATIENT

DRUGS (1)
  1. TAMSULOSIN HCL [Suspect]
     Indication: PROSTATOMEGALY
     Dosage: .4 MG ONE PER DAY ORAL
     Route: 048
     Dates: start: 20100425, end: 20100501

REACTIONS (3)
  - ABDOMINAL PAIN LOWER [None]
  - ANORGASMIA [None]
  - RETROGRADE EJACULATION [None]
